FAERS Safety Report 9523933 (Version 1)
Quarter: 2013Q3

REPORT INFORMATION
  Report Type: Spontaneous
  Country: US (occurrence: None)
  Receive Date: 20130912
  Receipt Date: 20130912
  Transmission Date: 20140515
  Serious: Yes (Hospitalization)
  Sender: FDA-Public Use
  Company Number: 13AE014

PATIENT
  Age: 41 Year
  Sex: Female

DRUGS (3)
  1. PHENYLEPHRINE [Suspect]
     Indication: SINUS CONGESTION
     Dosage: 4-6 TABLETS/ DAILY
     Dates: start: 20130626, end: 20130826
  2. ZYRTEC [Concomitant]
  3. MUCINEX [Concomitant]

REACTIONS (4)
  - Hallucination, visual [None]
  - Hallucination, auditory [None]
  - Asthma [None]
  - Blood potassium decreased [None]
